FAERS Safety Report 14158645 (Version 1)
Quarter: 2017Q4

REPORT INFORMATION
  Report Type: Spontaneous
  Country: DE (occurrence: DE)
  Receive Date: 20171106
  Receipt Date: 20171106
  Transmission Date: 20180321
  Serious: Yes (Life-Threatening, Other)
  Sender: FDA-Public Use
  Company Number: DE-ALVOGEN-2017-ALVOGEN-093934

PATIENT
  Age: 60 Year
  Sex: Male

DRUGS (4)
  1. FLECAINIDE [Suspect]
     Active Substance: FLECAINIDE
     Indication: CARDIOVERSION
     Dosage: 1 MG/KG OVER 5 MINUTES
     Route: 041
  2. FLECAINIDE [Suspect]
     Active Substance: FLECAINIDE
     Indication: CARDIOVERSION
     Dosage: 0.3 MG/KG FLECAINIDE
     Route: 041
  3. RIVAROXABAN [Concomitant]
     Active Substance: RIVAROXABAN
     Indication: ANTICOAGULANT THERAPY
     Route: 048
  4. METOPROLOL SUCCINATE. [Concomitant]
     Active Substance: METOPROLOL SUCCINATE
     Indication: ANTICOAGULANT THERAPY
     Route: 048

REACTIONS (1)
  - Cardiovascular insufficiency [Recovered/Resolved]
